FAERS Safety Report 25615798 (Version 2)
Quarter: 2025Q3

REPORT INFORMATION
  Report Type: Spontaneous
  Country: EU (occurrence: EU)
  Receive Date: 20250729
  Receipt Date: 20250903
  Transmission Date: 20251021
  Serious: Yes (Other)
  Sender: BEIGENE
  Company Number: EU-BEIGENE-BGN-2025-012188

PATIENT
  Age: 80 Year

DRUGS (10)
  1. BRUKINSA [Suspect]
     Active Substance: ZANUBRUTINIB
     Indication: Waldenstrom^s macroglobulinaemia
  2. ROSUVASTATIN [Concomitant]
     Active Substance: ROSUVASTATIN
  3. BISOPROLOL [Concomitant]
     Active Substance: BISOPROLOL
  4. ENALAPRIL [Concomitant]
     Active Substance: ENALAPRIL
  5. LERCANIDIPINE [Concomitant]
     Active Substance: LERCANIDIPINE
  6. ASPIRIN [Concomitant]
     Active Substance: ASPIRIN
  7. DUTASTERIDE\TAMSULOSIN [Concomitant]
     Active Substance: DUTASTERIDE\TAMSULOSIN
  8. Codipar [Concomitant]
  9. MOVICOL [Concomitant]
     Active Substance: POLYETHYLENE GLYCOL 3350\POTASSIUM CHLORIDE\SODIUM BICARBONATE\SODIUM CHLORIDE
  10. DAPSONE [Concomitant]
     Active Substance: DAPSONE

REACTIONS (3)
  - Disease progression [Unknown]
  - Blood immunoglobulin M increased [Unknown]
  - Drug ineffective [Unknown]
